FAERS Safety Report 20750814 (Version 4)
Quarter: 2022Q4

REPORT INFORMATION
  Report Type: Report from Study
  Country: DE (occurrence: DE)
  Receive Date: 20220426
  Receipt Date: 20221004
  Transmission Date: 20230113
  Serious: Yes (Other)
  Sender: FDA-Public Use
  Company Number: DE-ABBVIE-22K-062-4369903-00

PATIENT
  Age: 63 Year
  Sex: Male

DRUGS (35)
  1. SKYRIZI [Suspect]
     Active Substance: RISANKIZUMAB-RZAA
     Indication: Product used for unknown indication
     Route: 058
     Dates: start: 20191024, end: 20200506
  2. SKYRIZI [Suspect]
     Active Substance: RISANKIZUMAB-RZAA
     Route: 058
     Dates: start: 20200507, end: 20210713
  3. SKYRIZI [Suspect]
     Active Substance: RISANKIZUMAB-RZAA
     Route: 058
     Dates: start: 20210713, end: 20211104
  4. SKYRIZI [Suspect]
     Active Substance: RISANKIZUMAB-RZAA
     Route: 058
     Dates: start: 20211105
  5. CANDESARTAN [Concomitant]
     Active Substance: CANDESARTAN
     Indication: Hypertension
     Route: 048
     Dates: start: 20190701
  6. AMLODIPINE BESYLATE [Concomitant]
     Active Substance: AMLODIPINE BESYLATE
     Indication: Hypertension
     Route: 048
     Dates: start: 20160101, end: 20200510
  7. AMLODIPINE BESYLATE [Concomitant]
     Active Substance: AMLODIPINE BESYLATE
     Indication: Hypertension
     Route: 048
     Dates: start: 20200511, end: 20200531
  8. AMLODIPINE BESYLATE [Concomitant]
     Active Substance: AMLODIPINE BESYLATE
     Indication: Hypertension
     Route: 048
     Dates: start: 20200511, end: 20200531
  9. TORSEMIDE [Concomitant]
     Active Substance: TORSEMIDE
     Indication: Hypertension
     Route: 048
     Dates: start: 20190701
  10. ELIQUIS [Concomitant]
     Active Substance: APIXABAN
     Indication: Atrial fibrillation
     Route: 048
     Dates: start: 20161201
  11. ELIQUIS [Concomitant]
     Active Substance: APIXABAN
     Indication: Atrial fibrillation
     Route: 048
     Dates: start: 20161201
  12. ALLOPURINOL [Concomitant]
     Active Substance: ALLOPURINOL
     Indication: Hyperuricaemia
     Route: 048
     Dates: start: 20090101
  13. IODINE [Concomitant]
     Active Substance: IODINE
     Indication: Hypothyroidism
     Route: 048
     Dates: start: 20160601
  14. FOLIC ACID [Concomitant]
     Active Substance: FOLIC ACID
     Indication: Polyneuropathy
     Route: 048
     Dates: start: 20170901
  15. Bepanthen scar roller [Concomitant]
     Indication: Product used for unknown indication
     Dosage: 1 APPLICATION
     Route: 061
     Dates: start: 20200724
  16. VITAMIN B12 [Concomitant]
     Active Substance: CYANOCOBALAMIN
     Indication: Polyneuropathy
     Route: 058
     Dates: start: 20170901
  17. ENSTILAR [Concomitant]
     Active Substance: BETAMETHASONE DIPROPIONATE\CALCIPOTRIENE HYDRATE
     Indication: Psoriasis
     Dosage: FOAM
     Route: 061
     Dates: start: 20190501
  18. ENSTILAR [Concomitant]
     Active Substance: BETAMETHASONE DIPROPIONATE\CALCIPOTRIENE HYDRATE
     Indication: Psoriasis
     Dosage: 1 APPLICATION?FOAM
     Route: 061
     Dates: start: 20201101
  19. BETAMETHASONE DIPROPIONATE\CLOTRIMAZOLE [Concomitant]
     Active Substance: BETAMETHASONE DIPROPIONATE\CLOTRIMAZOLE
     Indication: Psoriasis
     Route: 061
     Dates: start: 20190801
  20. LUXERM [Concomitant]
     Indication: Actinic keratosis
     Route: 061
     Dates: start: 20200416, end: 20200416
  21. LUXERM [Concomitant]
     Indication: Actinic keratosis
     Dosage: 160 MG/G
     Route: 061
     Dates: start: 20210718, end: 20210718
  22. LUXERM [Concomitant]
     Indication: Actinic keratosis
     Route: 061
     Dates: start: 20200808, end: 20200808
  23. LUXERM [Concomitant]
     Indication: Actinic keratosis
     Route: 061
     Dates: start: 20210718, end: 20210718
  24. LUXERM [Concomitant]
     Indication: Actinic keratosis
     Dosage: 160 MG/G
     Route: 061
     Dates: start: 20200808, end: 20200808
  25. LERCANIDIPINE [Concomitant]
     Active Substance: LERCANIDIPINE
     Indication: Product used for unknown indication
     Route: 048
     Dates: start: 20200601, end: 20210622
  26. LERCANIDIPINE [Concomitant]
     Active Substance: LERCANIDIPINE
     Indication: Product used for unknown indication
     Route: 048
     Dates: start: 20210622
  27. BEPANTHEN [Concomitant]
     Indication: Rhinitis
     Dosage: 1 APPLICATION?NOSE SALVE
     Route: 061
     Dates: start: 20200213
  28. VITAMIN B12 [Concomitant]
     Active Substance: CYANOCOBALAMIN
     Indication: Product used for unknown indication
     Route: 058
     Dates: start: 20170901
  29. LERCANIDIPINE [Concomitant]
     Active Substance: LERCANIDIPINE
     Indication: Hypertension
     Route: 048
     Dates: start: 20200601, end: 20210622
  30. LERCANIDIPINE [Concomitant]
     Active Substance: LERCANIDIPINE
     Indication: Hypertension
     Route: 048
     Dates: start: 20210626
  31. Bepanthen Nosesalve [Concomitant]
     Indication: Product used for unknown indication
     Dosage: MAX TWICE DAILY
     Route: 061
     Dates: start: 20200213
  32. BEPANTHEN SCAR TREATMENT [Concomitant]
     Indication: Scar
     Dosage: SCAR ROLLER 1 APPLICATION
     Route: 061
     Dates: start: 20200724
  33. SPIRONOLACTONE [Concomitant]
     Active Substance: SPIRONOLACTONE
     Indication: Hypertension
     Route: 048
     Dates: start: 20210707
  34. SPIRONOLACTONE [Concomitant]
     Active Substance: SPIRONOLACTONE
     Indication: Hypertension
     Route: 048
     Dates: start: 20210707
  35. Enstilar foarm [Concomitant]
     Indication: Product used for unknown indication
     Dosage: 1 APPLICATION
     Route: 061
     Dates: start: 20201101

REACTIONS (2)
  - Atrial fibrillation [Recovered/Resolved]
  - Tachycardia [Recovered/Resolved]

NARRATIVE: CASE EVENT DATE: 20220403
